FAERS Safety Report 15243906 (Version 1)
Quarter: 2018Q3

REPORT INFORMATION
  Report Type: Spontaneous
  Country: US (occurrence: US)
  Receive Date: 20180806
  Receipt Date: 20180806
  Transmission Date: 20181010
  Serious: No
  Sender: FDA-Public Use
  Company Number: US-SA-2018SA210878

PATIENT
  Age: 83 Year
  Sex: Male

DRUGS (1)
  1. LANTUS SOLOSTAR [Suspect]
     Active Substance: INSULIN GLARGINE
     Indication: TYPE 2 DIABETES MELLITUS
     Dosage: 20 U, QD, 2?3 YEARS

REACTIONS (6)
  - Malaise [Unknown]
  - Visual impairment [Unknown]
  - Blood glucose increased [Unknown]
  - Device operational issue [Unknown]
  - Hyperhidrosis [Unknown]
  - Dizziness [Unknown]
